FAERS Safety Report 8722052 (Version 2)
Quarter: 2012Q4

REPORT INFORMATION
  Report Type: Report from Study
  Country: JP (occurrence: JP)
  Receive Date: 20120814
  Receipt Date: 20120910
  Transmission Date: 20130627
  Serious: Yes (Hospitalization, Other)
  Sender: FDA-Public Use
  Company Number: PHHY2012JP067778

PATIENT
  Age: 74 Year
  Sex: Female
  Weight: 53 kg

DRUGS (18)
  1. ALISKIREN [Suspect]
     Indication: HYPERTENSION
     Dosage: 150 mg, QD
     Route: 048
     Dates: start: 20100521, end: 20101012
  2. ALISKIREN [Suspect]
     Dosage: 150 mg, QD
     Dates: start: 20101204
  3. APONOL [Suspect]
     Dosage: 30 mg, daily
     Route: 048
     Dates: start: 20100304, end: 20101009
  4. APONOL [Suspect]
     Dosage: 30 mg, daily
     Route: 048
     Dates: start: 20101204
  5. RAMIAN [Suspect]
     Dosage: 5 mg, daily
     Route: 048
     Dates: start: 20100304, end: 20101009
  6. RAMIAN [Suspect]
     Dosage: 5 mg, daily
     Route: 048
     Dates: start: 20101204
  7. EUGLUCON [Suspect]
     Dosage: 2.5 mg, daily
     Dates: start: 20100304, end: 20101009
  8. EUGLUCON [Suspect]
     Dosage: 2.5 mg, daily
     Route: 048
     Dates: start: 20101204
  9. SITAGLIPTIN PHOSPHATE [Suspect]
     Dosage: 50 mg, daily
     Route: 048
     Dates: start: 20100419, end: 20101009
  10. SITAGLIPTIN PHOSPHATE [Suspect]
     Dosage: 50 mg, daily
     Route: 048
     Dates: start: 20101204
  11. MECOBALAMIN [Concomitant]
     Dosage: 1.5 mg, UNK
     Route: 048
     Dates: start: 20100304
  12. MECOBALAMIN [Concomitant]
     Dosage: 1.5 mg, UNK
     Route: 048
     Dates: end: 20110318
  13. MYSLEE [Concomitant]
     Dosage: 5 mg, UNK
     Route: 048
     Dates: start: 20100304
  14. MYSLEE [Concomitant]
     Dosage: 5 mg, UNK
     Route: 048
  15. LASIX [Concomitant]
     Indication: HYPERTENSION
     Dosage: 40 mg, UNK
     Route: 048
     Dates: start: 20100419
  16. LASIX [Concomitant]
     Dosage: 40 mg, UNK
     Route: 048
  17. ADALAT CR [Concomitant]
     Indication: HYPERTENSION
     Dosage: 20 mg, UNK
     Route: 048
     Dates: start: 20101204
  18. ADALAT CR [Concomitant]
     Dosage: 10 mg, UNK
     Route: 048

REACTIONS (5)
  - Enterocolitis [Recovered/Resolved]
  - Gastric ulcer [Recovered/Resolved]
  - Blood pressure systolic increased [Unknown]
  - Blood creatinine increased [Recovered/Resolved]
  - Glycosylated haemoglobin increased [Recovered/Resolved]
